FAERS Safety Report 4841328-0 (Version None)
Quarter: 2005Q4

REPORT INFORMATION
  Report Type: 
  Country: None (occurrence: None)
  Receive Date: 20051130
  Receipt Date: 20051121
  Transmission Date: 20060501
  Serious: Yes (Hospitalization)
  Sender: FDA-Public Use
  Company Number: 423832

PATIENT
  Age: 63 Year
  Sex: Male

DRUGS (4)
  1. CARVEDILOL [Suspect]
     Dosage: 5MG TWICE PER DAY
     Route: 048
     Dates: start: 20030919
  2. ACECOL [Concomitant]
     Dates: start: 20000209, end: 20030919
  3. HERBESSER [Concomitant]
     Dates: start: 20000209, end: 20030919
  4. ISOSORBIDE MONONITRATE [Concomitant]
     Dates: start: 20000209, end: 20030919

REACTIONS (2)
  - ABDOMINAL DISTENSION [None]
  - HYPERTENSION [None]
